FAERS Safety Report 21207325 (Version 1)
Quarter: 2022Q3

REPORT INFORMATION
  Report Type: Spontaneous
  Country: US (occurrence: US)
  Receive Date: 20220812
  Receipt Date: 20220812
  Transmission Date: 20221027
  Serious: No
  Sender: FDA-Public Use
  Company Number: US-PFIZER INC-202200779901

PATIENT

DRUGS (1)
  1. BICILLIN L-A [Suspect]
     Active Substance: PENICILLIN G BENZATHINE
     Dosage: 2400000 IU

REACTIONS (3)
  - Poor quality device used [Unknown]
  - Needle issue [Unknown]
  - Device defective [Unknown]

NARRATIVE: CASE EVENT DATE: 20220122
